FAERS Safety Report 12504199 (Version 1)
Quarter: 2016Q2

REPORT INFORMATION
  Report Type: Spontaneous
  Country: CA (occurrence: CA)
  Receive Date: 20160628
  Receipt Date: 20160628
  Transmission Date: 20160815
  Serious: Yes (Other)
  Sender: FDA-Public Use
  Company Number: CA-ASTRAZENECA-2016SE68003

PATIENT
  Age: 84 Year
  Sex: Male
  Weight: 49 kg

DRUGS (7)
  1. BACLOFEN. [Suspect]
     Active Substance: BACLOFEN
     Indication: MUSCLE SPASTICITY
     Route: 065
  2. ASA [Concomitant]
     Active Substance: ASPIRIN
  3. BACLOFEN. [Suspect]
     Active Substance: BACLOFEN
     Indication: MUSCLE SPASTICITY
     Route: 065
  4. COVERSYL [Concomitant]
     Active Substance: PERINDOPRIL
  5. LYRICA [Concomitant]
     Active Substance: PREGABALIN
  6. NEXIUM [Suspect]
     Active Substance: ESOMEPRAZOLE MAGNESIUM
     Route: 048
  7. TYLENOL [Concomitant]
     Active Substance: ACETAMINOPHEN

REACTIONS (2)
  - Salivary hypersecretion [Recovered/Resolved]
  - Choking [Recovered/Resolved]
